FAERS Safety Report 8089728-2 (Version None)
Quarter: 2012Q1

REPORT INFORMATION
  Report Type: 
  Country: None (occurrence: None)
  Receive Date: 20120128
  Receipt Date: 20110702
  Transmission Date: 20120608
  Serious: No
  Sender: FDA-Public Use
  Company Number: US-ABBOTT-11P-163-0836120-00

PATIENT
  Age: 46 Year
  Sex: Female

DRUGS (8)
  1. HUMIRA [Suspect]
     Indication: RHEUMATOID ARTHRITIS
     Dates: start: 20091001, end: 20100801
  2. VITAMIN D [Concomitant]
     Indication: VITAMIN D DEFICIENCY
  3. IRON [Concomitant]
     Indication: PRODUCT USED FOR UNKNOWN INDICATION
  4. PREDNISONE TAB [Concomitant]
     Indication: PRODUCT USED FOR UNKNOWN INDICATION
  5. OMNIPRED [Concomitant]
     Indication: PRODUCT USED FOR UNKNOWN INDICATION
     Dosage: RIGHT EYE
     Route: 047
  6. CALCITRATE [Concomitant]
     Indication: PRODUCT USED FOR UNKNOWN INDICATION
  7. TRIBENZOR [Concomitant]
     Indication: HYPERTENSION
     Dosage: 20MG/5MG/12.5MG
  8. HUMIRA [Suspect]
     Dosage: UNREPORTED DOSE AND FREQUENCY
     Dates: start: 20110101

REACTIONS (3)
  - ARTHRITIS [None]
  - VISION BLURRED [None]
  - IRIDOCYCLITIS [None]
